FAERS Safety Report 5570515-1 (Version None)
Quarter: 2007Q4

REPORT INFORMATION
  Report Type: 
  Country: None (occurrence: None)
  Receive Date: 20071219
  Receipt Date: 20071204
  Transmission Date: 20080405
  Serious: Yes (Other)
  Sender: FDA-Public Use
  Company Number: 2007SP024675

PATIENT
  Age: 48 Year
  Sex: Male

DRUGS (3)
  1. MIRALAX [Suspect]
     Indication: DRUG USE FOR UNKNOWN INDICATION
     Dosage: 17 GM;ONCE;PO
     Route: 048
     Dates: start: 20071129
  2. NEURONTIN [Concomitant]
  3. KLONOPIN [Concomitant]

REACTIONS (2)
  - HYPOAESTHESIA [None]
  - URINARY RETENTION [None]
